FAERS Safety Report 4913916-4 (Version None)
Quarter: 2006Q1

REPORT INFORMATION
  Report Type: 
  Country: None (occurrence: None)
  Receive Date: 20060216
  Receipt Date: 20041203
  Transmission Date: 20060701
  Serious: Yes (Death, Hospitalization, Other)
  Sender: FDA-Public Use
  Company Number: US-MERCK-0412USA00600

PATIENT
  Age: 55 Year
  Sex: Male
  Weight: 75 kg

DRUGS (1)
  1. VIOXX [Suspect]
     Indication: ARTHRITIS
     Route: 048
     Dates: start: 20020201, end: 20040901

REACTIONS (5)
  - ARRHYTHMIA [None]
  - DEATH [None]
  - DEVICE RELATED INFECTION [None]
  - INJURY [None]
  - MYOCARDIAL INFARCTION [None]
